FAERS Safety Report 22945286 (Version 2)
Quarter: 2023Q4

REPORT INFORMATION
  Report Type: Spontaneous
  Country: CA (occurrence: CA)
  Receive Date: 20230914
  Receipt Date: 20231012
  Transmission Date: 20240109
  Serious: Yes (Other)
  Sender: FDA-Public Use
  Company Number: CA-AMERICAN REGENT INC-2023002162

PATIENT
  Age: 42 Year
  Sex: Female

DRUGS (1)
  1. VENOFER [Suspect]
     Active Substance: IRON SUCROSE
     Indication: Iron deficiency anaemia
     Dosage: 100 MILLIGRAM (100MG/5ML), SINGLE
     Dates: start: 20230510, end: 20230510

REACTIONS (2)
  - Burning sensation [Unknown]
  - Urticaria [Unknown]

NARRATIVE: CASE EVENT DATE: 20230510
